FAERS Safety Report 20223191 (Version 4)
Quarter: 2022Q1

REPORT INFORMATION
  Report Type: Spontaneous
  Country: IE (occurrence: IE)
  Receive Date: 20211223
  Receipt Date: 20220112
  Transmission Date: 20220423
  Serious: Yes (Death, Hospitalization, Other)
  Sender: FDA-Public Use
  Company Number: IE-ROCHE-2958389

PATIENT
  Age: 71 Year
  Sex: Male

DRUGS (10)
  1. GEMCITABINE [Suspect]
     Active Substance: GEMCITABINE
     Indication: T-cell lymphoma
     Dosage: UNK, 1 CYCLE
     Route: 065
  2. CISPLATIN [Suspect]
     Active Substance: CISPLATIN
     Indication: T-cell lymphoma
     Dosage: UNK, 1 CYCLE
     Route: 065
  3. RITUXIMAB [Suspect]
     Active Substance: RITUXIMAB
     Indication: T-cell lymphoma
     Dosage: UNK
     Route: 065
  4. RITUXIMAB [Suspect]
     Active Substance: RITUXIMAB
     Dosage: R-CVP THERAPY
     Route: 065
  5. GANCICLOVIR [Suspect]
     Active Substance: GANCICLOVIR
     Indication: T-cell lymphoma
     Dosage: UNK, 1 CYCLE
     Route: 065
  6. GANCICLOVIR [Suspect]
     Active Substance: GANCICLOVIR
     Dosage: UNK, 2/52
     Route: 065
  7. DEXAMETHASONE [Suspect]
     Active Substance: DEXAMETHASONE
     Indication: T-cell lymphoma
     Dosage: UNK, 1 CYCLE
     Route: 065
  8. VINCRISTINE SULFATE [Concomitant]
     Active Substance: VINCRISTINE SULFATE
     Dosage: UNK
  9. PREDNISONE [Concomitant]
     Active Substance: PREDNISONE
     Dosage: UNK
  10. CYCLOPHOSPHAMIDE [Concomitant]
     Active Substance: CYCLOPHOSPHAMIDE
     Dosage: UNK

REACTIONS (9)
  - Disease progression [Fatal]
  - Cough [Unknown]
  - Dyspnoea [Unknown]
  - Pneumocystis jirovecii pneumonia [Unknown]
  - Pneumonia [Unknown]
  - Ascites [Unknown]
  - Lymphadenopathy mediastinal [Unknown]
  - Weight decreased [Unknown]
  - Pyrexia [Unknown]
